FAERS Safety Report 7038515-2 (Version None)
Quarter: 2010Q4

REPORT INFORMATION
  Report Type: 
  Country: None (occurrence: None)
  Receive Date: 20101011
  Receipt Date: 20100512
  Transmission Date: 20110411
  Serious: Yes (Other)
  Sender: FDA-Public Use
  Company Number: US-PFIZER INC-2010060588

PATIENT
  Sex: Female

DRUGS (2)
  1. NEURONTIN [Suspect]
     Dosage: 300 MG, 2X/DAY
     Route: 048
     Dates: start: 20080101, end: 20091101
  2. NEURONTIN [Suspect]
     Dosage: 600 MG, 2X/DAY
     Dates: start: 20091101

REACTIONS (3)
  - INCORRECT DOSE ADMINISTERED [None]
  - MOBILITY DECREASED [None]
  - RENAL FAILURE [None]
